FAERS Safety Report 19420693 (Version 1)
Quarter: 2021Q2

REPORT INFORMATION
  Report Type: Spontaneous
  Country: IT (occurrence: IT)
  Receive Date: 20210616
  Receipt Date: 20210616
  Transmission Date: 20210717
  Serious: No
  Sender: FDA-Public Use
  Company Number: IT-ALKEM LABORATORIES LIMITED-IT-ALKEM-2021-02277

PATIENT
  Age: 12 Year
  Sex: Male

DRUGS (22)
  1. ARIPIPRAZOLE. [Suspect]
     Active Substance: ARIPIPRAZOLE
     Dosage: 6 MILLIGRAM, QD
     Route: 065
  2. ARIPIPRAZOLE. [Suspect]
     Active Substance: ARIPIPRAZOLE
     Dosage: 15 MILLIGRAM, QD
     Route: 065
  3. ARIPIPRAZOLE. [Suspect]
     Active Substance: ARIPIPRAZOLE
     Dosage: 15 MILLIGRAM, QD
     Route: 065
  4. INTRAVENOUS IMMUNOGLOBULIN [Suspect]
     Active Substance: HUMAN IMMUNOGLOBULIN G
     Indication: ANTIPSYCHOTIC DRUG LEVEL
     Dosage: 15 GRAM
     Route: 065
  5. RISPERIDONE. [Suspect]
     Active Substance: RISPERIDONE
     Dosage: 01 MILLIGRAM, QD
     Route: 065
  6. RISPERIDONE. [Suspect]
     Active Substance: RISPERIDONE
     Dosage: 04 MILLIGRAM, QD
     Route: 065
  7. VALPROIC ACID. [Suspect]
     Active Substance: VALPROIC ACID
     Indication: ANTIPSYCHOTIC DRUG LEVEL
     Dosage: 600 MILLIGRAM, QD
     Route: 065
  8. VALPROIC ACID. [Suspect]
     Active Substance: VALPROIC ACID
     Dosage: 600 MILLIGRAM, QD
     Route: 065
  9. RISPERIDONE. [Suspect]
     Active Substance: RISPERIDONE
     Dosage: 01 MILLIGRAM, QD
     Route: 065
  10. INTRAVENOUS IMMUNOGLOBULIN [Suspect]
     Active Substance: HUMAN IMMUNOGLOBULIN G
     Dosage: 15 GRAM
     Route: 065
  11. FLUVOXAMINE [Suspect]
     Active Substance: FLUVOXAMINE
     Indication: ANTIPSYCHOTIC DRUG LEVEL
     Dosage: 100 MILLIGRAM, QD
     Route: 065
  12. FLUVOXAMINE [Suspect]
     Active Substance: FLUVOXAMINE
     Dosage: 100 MILLIGRAM, QD
     Route: 065
  13. RISPERIDONE. [Suspect]
     Active Substance: RISPERIDONE
     Dosage: 04 MILLIGRAM, QD
     Route: 065
  14. RISPERIDONE. [Suspect]
     Active Substance: RISPERIDONE
     Dosage: 04 MILLIGRAM, QD
     Route: 065
  15. INTRAVENOUS IMMUNOGLOBULIN [Suspect]
     Active Substance: HUMAN IMMUNOGLOBULIN G
     Dosage: 15 GRAM
     Route: 065
  16. ARIPIPRAZOLE. [Suspect]
     Active Substance: ARIPIPRAZOLE
     Dosage: 15 MILLIGRAM, QD
     Route: 065
  17. CLOMIPRAMINE [Suspect]
     Active Substance: CLOMIPRAMINE
     Indication: ANTIPSYCHOTIC DRUG LEVEL
     Dosage: 20 MILLIGRAM, QD
     Route: 065
  18. ARIPIPRAZOLE. [Suspect]
     Active Substance: ARIPIPRAZOLE
     Indication: TOURETTE^S DISORDER
     Dosage: 6 MILLIGRAM, QD
     Route: 065
  19. RISPERIDONE. [Suspect]
     Active Substance: RISPERIDONE
     Indication: ANTIPSYCHOTIC DRUG LEVEL
     Dosage: 0.75 MILLIGRAM, QD
     Route: 065
  20. LEVOMEPROMAZINE [Suspect]
     Active Substance: LEVOMEPROMAZINE
     Indication: ANTIPSYCHOTIC DRUG LEVEL
     Dosage: 100 MILLIGRAM, QD
     Route: 065
  21. METHYLPHENIDATE HYDROCHLORIDE. [Suspect]
     Active Substance: METHYLPHENIDATE HYDROCHLORIDE
     Indication: ANTIPSYCHOTIC DRUG LEVEL
     Dosage: 10 MILLIGRAM, QD
     Route: 065
  22. METHYLPHENIDATE HYDROCHLORIDE. [Suspect]
     Active Substance: METHYLPHENIDATE HYDROCHLORIDE
     Dosage: 10 MILLIGRAM, QD
     Route: 065

REACTIONS (1)
  - Therapeutic response decreased [Unknown]
